FAERS Safety Report 8254781-X (Version None)
Quarter: 2012Q2

REPORT INFORMATION
  Report Type: 
  Country: None (occurrence: None)
  Receive Date: 20120403
  Receipt Date: 20120326
  Transmission Date: 20120825
  Serious: Yes (Other)
  Sender: FDA-Public Use
  Company Number: PHHY2012NO025998

PATIENT
  Sex: Female

DRUGS (1)
  1. EXTAVIA [Suspect]
     Indication: MULTIPLE SCLEROSIS
     Dosage: 250 UG, UNK
     Route: 058
     Dates: start: 20111101, end: 20120206

REACTIONS (5)
  - DEPRESSION [None]
  - PERSONALITY CHANGE [None]
  - MAJOR DEPRESSION [None]
  - SUICIDAL IDEATION [None]
  - NEGATIVE THOUGHTS [None]
